FAERS Safety Report 13909715 (Version 1)
Quarter: 2017Q3

REPORT INFORMATION
  Report Type: Spontaneous
  Country: US (occurrence: US)
  Receive Date: 20170828
  Receipt Date: 20170828
  Transmission Date: 20171127
  Serious: No
  Sender: FDA-Public Use
  Company Number: PHEH2017US025955

PATIENT
  Age: 68 Year
  Sex: Female
  Weight: 61.23 kg

DRUGS (9)
  1. SPIRONOLACTON [Concomitant]
     Active Substance: SPIRONOLACTONE
     Indication: PRODUCT USED FOR UNKNOWN INDICATION
     Dosage: 1 DF, BID (FOR 30 DAYS)
     Route: 048
     Dates: start: 20160302
  2. DEXAMETHASONE. [Concomitant]
     Active Substance: DEXAMETHASONE
     Indication: PRODUCT USED FOR UNKNOWN INDICATION
     Route: 065
  3. HYDROCHLOROTHIAZIDE. [Concomitant]
     Active Substance: HYDROCHLOROTHIAZIDE
     Indication: PRODUCT USED FOR UNKNOWN INDICATION
     Dosage: 1 DF, QD
     Route: 048
     Dates: start: 20170424
  4. LEVOTHYROXINE. [Concomitant]
     Active Substance: LEVOTHYROXINE
     Indication: PRODUCT USED FOR UNKNOWN INDICATION
  5. PROCHLORPERAZINE MALEATE. [Concomitant]
     Active Substance: PROCHLORPERAZINE MALEATE
     Indication: NAUSEA
     Dosage: UNK UNK, PRN (1-2 TABLETS Q6-8 HRS)
     Route: 048
     Dates: start: 20151217
  6. ZOFRAN [Concomitant]
     Active Substance: ONDANSETRON HYDROCHLORIDE
     Indication: PRODUCT USED FOR UNKNOWN INDICATION
     Dosage: 1 DF, Q6H
     Route: 048
     Dates: start: 20160330
  7. ZOLPIDEM [Concomitant]
     Active Substance: ZOLPIDEM\ZOLPIDEM TARTRATE
     Indication: PRODUCT USED FOR UNKNOWN INDICATION
     Dosage: 1 DF, QD
     Route: 048
     Dates: start: 20170629
  8. TASIGNA [Suspect]
     Active Substance: NILOTINIB
     Indication: PRODUCT USED FOR UNKNOWN INDICATION
     Route: 065
  9. STIVARGA [Suspect]
     Active Substance: REGORAFENIB
     Indication: PRODUCT USED FOR UNKNOWN INDICATION
     Dosage: UNK
     Route: 065
     Dates: end: 20170425

REACTIONS (18)
  - Blood creatinine increased [Unknown]
  - Abdominal distension [Unknown]
  - Depression [Unknown]
  - Asthenia [Unknown]
  - Decreased appetite [Unknown]
  - Drug intolerance [Unknown]
  - Thinking abnormal [Unknown]
  - Vision blurred [Recovering/Resolving]
  - Fatigue [Unknown]
  - Treatment failure [Unknown]
  - Malaise [Unknown]
  - Blood pressure increased [Unknown]
  - Confusional state [Unknown]
  - Ocular icterus [Unknown]
  - Disease progression [Unknown]
  - Intra-abdominal fluid collection [Unknown]
  - Hallucination [Unknown]
  - Blood bilirubin increased [Unknown]

NARRATIVE: CASE EVENT DATE: 20170427
